FAERS Safety Report 9374915 (Version 1)
Quarter: 2013Q2

REPORT INFORMATION
  Report Type: Spontaneous
  Country: US (occurrence: US)
  Receive Date: 20130628
  Receipt Date: 20130628
  Transmission Date: 20140414
  Serious: Yes (Other)
  Sender: FDA-Public Use
  Company Number: US-B.I. PHARMACEUTICALS,INC./RIDGEFIELD-2013-BI-18165BP

PATIENT
  Age: 78 Year
  Sex: Female
  Weight: 108 kg

DRUGS (5)
  1. SPIRIVA [Suspect]
     Indication: COR PULMONALE
     Dosage: 18 MCG
     Route: 055
     Dates: start: 2010
  2. PLAQUERIL [Concomitant]
     Indication: SYSTEMIC LUPUS ERYTHEMATOSUS
     Dosage: 400 MG
     Route: 048
  3. TRIAMTERENE/HYDROCHLOROTHIAZIDE [Concomitant]
     Indication: CARDIAC FAILURE CONGESTIVE
     Dosage: STRENGTH: 75 MG/50MG; DAILY DOSE: 75 MG/50MG
     Route: 048
  4. COZAAR [Concomitant]
     Indication: HYPERTENSION
     Dosage: 50 MG
     Route: 048
  5. FUROSEMIDE [Concomitant]
     Indication: CARDIAC FAILURE CONGESTIVE
     Dosage: 40 MG
     Route: 048

REACTIONS (10)
  - Cardiac failure congestive [Not Recovered/Not Resolved]
  - Oedema [Unknown]
  - Local swelling [Unknown]
  - Pneumonia aspiration [Not Recovered/Not Resolved]
  - Systemic lupus erythematosus [Not Recovered/Not Resolved]
  - Fatigue [Not Recovered/Not Resolved]
  - Pneumonia [Not Recovered/Not Resolved]
  - Asthma [Not Recovered/Not Resolved]
  - Bronchospasm [Not Recovered/Not Resolved]
  - Productive cough [Unknown]
